FAERS Safety Report 4362188-0 (Version None)
Quarter: 2004Q2

REPORT INFORMATION
  Report Type: 
  Country: None (occurrence: None)
  Receive Date: 20040517
  Receipt Date: 20040503
  Transmission Date: 20050107
  Serious: Yes (Hospitalization)
  Sender: FDA-Public Use
  Company Number: 2004029708

PATIENT
  Age: 65 Year
  Sex: Male
  Weight: 97 kg

DRUGS (5)
  1. GEMFIBROZIL [Suspect]
     Indication: HYPERCHOLESTEROLAEMIA
     Dosage: ORAL
     Route: 048
     Dates: end: 20040305
  2. ALLOPURINOL [Suspect]
     Indication: ILL-DEFINED DISORDER
     Dosage: 1 IN 1 D, ORAL
     Route: 048
     Dates: start: 20040206, end: 20040209
  3. NIZATIDINE [Suspect]
     Indication: ILL-DEFINED DISORDER
     Dosage: 150 MG, ORAL
     Route: 048
     Dates: start: 20040105, end: 20040305
  4. NORDAZEPAM (NORDAZEPAM) [Suspect]
     Indication: ILL-DEFINED DISORDER
     Dosage: 7.5 MG, ORAL
     Route: 048
     Dates: start: 20040105, end: 20040305
  5. PREDNISOLONE [Suspect]
     Indication: ILL-DEFINED DISORDER
     Dosage: 20 MG, ORAL
     Route: 048
     Dates: start: 20040119, end: 20040215

REACTIONS (5)
  - DERMATITIS EXFOLIATIVE [None]
  - HYPERKERATOSIS [None]
  - LICHENIFICATION [None]
  - LYMPHADENOPATHY [None]
  - TOXIC SKIN ERUPTION [None]
